FAERS Safety Report 9770526 (Version 1)
Quarter: 2013Q4

REPORT INFORMATION
  Report Type: Spontaneous
  Country: US (occurrence: US)
  Receive Date: 20131218
  Receipt Date: 20131218
  Transmission Date: 20140711
  Serious: No
  Sender: FDA-Public Use
  Company Number: US-BIOGENIDEC-2013BI120836

PATIENT
  Age: 44 Year
  Sex: Female

DRUGS (7)
  1. TECFIDERA [Suspect]
     Indication: MULTIPLE SCLEROSIS
     Route: 048
     Dates: start: 20131111
  2. ADDERALL [Concomitant]
  3. AMBIEN [Concomitant]
  4. IBUPROFEN [Concomitant]
  5. LORTAB [Concomitant]
  6. MOBIC [Concomitant]
  7. VALIUM [Concomitant]

REACTIONS (2)
  - Decreased appetite [Unknown]
  - Abdominal pain [Unknown]
